FAERS Safety Report 11674188 (Version 1)
Quarter: 2015Q4

REPORT INFORMATION
  Report Type: Spontaneous
  Country: US (occurrence: US)
  Receive Date: 20151027
  Receipt Date: 20151027
  Transmission Date: 20160304
  Serious: No
  Sender: FDA-Public Use
  Company Number: US-ELI_LILLY_AND_COMPANY-US201006005497

PATIENT
  Sex: Female
  Weight: 215.42 kg

DRUGS (20)
  1. BONIVA [Concomitant]
     Active Substance: IBANDRONATE SODIUM
  2. FLONASE [Concomitant]
     Active Substance: FLUTICASONE PROPIONATE
  3. NEXIUM [Concomitant]
     Active Substance: ESOMEPRAZOLE MAGNESIUM
  4. TOPAMAX [Concomitant]
     Active Substance: TOPIRAMATE
  5. TEKTURNA [Concomitant]
     Active Substance: ALISKIREN HEMIFUMARATE
  6. FORTEO [Suspect]
     Active Substance: TERIPARATIDE
     Indication: OSTEOPOROSIS
     Dosage: 20 UG, DAILY (1/D)
     Dates: start: 20061008, end: 20100515
  7. GLIPIZIDE. [Concomitant]
     Active Substance: GLIPIZIDE
  8. EFFEXOR [Concomitant]
     Active Substance: VENLAFAXINE HYDROCHLORIDE
  9. ISOSORBIDE. [Concomitant]
     Active Substance: ISOSORBIDE
  10. BENADRYL [Concomitant]
     Active Substance: DIPHENHYDRAMINE HYDROCHLORIDE
  11. FUROSEMIDE. [Concomitant]
     Active Substance: FUROSEMIDE
  12. SIMVASTIN [Concomitant]
     Active Substance: SIMVASTATIN
  13. GABAPENTIN. [Concomitant]
     Active Substance: GABAPENTIN
  14. BENICAR [Concomitant]
     Active Substance: OLMESARTAN MEDOXOMIL
  15. BENTYL [Concomitant]
     Active Substance: DICYCLOMINE HYDROCHLORIDE
  16. METOPROLOL [Concomitant]
     Active Substance: METOPROLOL
  17. WELCHOL [Concomitant]
     Active Substance: COLESEVELAM HYDROCHLORIDE
  18. FORTEO [Suspect]
     Active Substance: TERIPARATIDE
     Dosage: 250 UG, DAILY (1/D)
  19. OXYGEN. [Concomitant]
     Active Substance: OXYGEN
  20. PREDNISONE. [Concomitant]
     Active Substance: PREDNISONE

REACTIONS (11)
  - Injection site erythema [Recovered/Resolved]
  - Prescribed overdose [Recovered/Resolved]
  - Skin exfoliation [Recovered/Resolved]
  - Erythema [Recovered/Resolved]
  - Cellulitis [Recovered/Resolved]
  - Dry skin [Recovered/Resolved]
  - Medication error [Recovered/Resolved]
  - Injection site vesicles [Recovered/Resolved]
  - Injection site infection [Recovered/Resolved]
  - Off label use [Recovered/Resolved]
  - Injection site pain [Recovered/Resolved]
